FAERS Safety Report 8772951 (Version 1)
Quarter: 2012Q4

REPORT INFORMATION
  Report Type: 
  Country: US (occurrence: US)
  Receive Date: 20120907
  Receipt Date: 20120907
  Transmission Date: 20130627
  Serious: Yes (Other)
  Sender: FDA-Public Use
  Company Number: US-PFIZER INC-2012219269

PATIENT
  Age: 21 Year
  Sex: Female

DRUGS (2)
  1. PRISTIQ [Suspect]
     Dosage: 50 mg, UNK
  2. FLAGYL [Concomitant]
     Dosage: UNK

REACTIONS (2)
  - Overdose [Unknown]
  - Suicide attempt [Unknown]
